FAERS Safety Report 23086423 (Version 2)
Quarter: 2023Q4

REPORT INFORMATION
  Report Type: Report from Study
  Country: AR (occurrence: AR)
  Receive Date: 20231019
  Receipt Date: 20231113
  Transmission Date: 20240110
  Serious: Yes (Other)
  Sender: FDA-Public Use
  Company Number: AR-BIOGEN-2023BI01199390

PATIENT
  Age: 26 Year
  Sex: Female

DRUGS (3)
  1. TYSABRI [Suspect]
     Active Substance: NATALIZUMAB
     Indication: Multiple sclerosis
     Dosage: THE LAST ADMINISTRATION WAS ON 15FEB2023 DUE TO DELAYS IN HER MEDICAL INSURANCE.
     Route: 050
     Dates: start: 20220328
  2. TYSABRI [Suspect]
     Active Substance: NATALIZUMAB
     Route: 050
     Dates: start: 20230419
  3. ESCITALOPRAM [Concomitant]
     Active Substance: ESCITALOPRAM OXALATE
     Indication: Product used for unknown indication
     Dosage: 2 TAB PER DAY
     Route: 050

REACTIONS (7)
  - Caesarean section [Recovered/Resolved]
  - Haemorrhage [Recovered/Resolved]
  - Incision site haemorrhage [Not Recovered/Not Resolved]
  - Coagulopathy [Not Recovered/Not Resolved]
  - Premature delivery [Recovered/Resolved]
  - Prescribed underdose [Not Recovered/Not Resolved]
  - Maternal exposure during pregnancy [Recovered/Resolved]

NARRATIVE: CASE EVENT DATE: 20230222
